FAERS Safety Report 17931047 (Version 2)
Quarter: 2020Q3

REPORT INFORMATION
  Report Type: Spontaneous
  Country: US (occurrence: US)
  Receive Date: 20200623
  Receipt Date: 20200713
  Transmission Date: 20201103
  Serious: Yes (Other)
  Sender: FDA-Public Use
  Company Number: NVSC2020US172809

PATIENT
  Sex: Female

DRUGS (1)
  1. KYMRIAH [Suspect]
     Active Substance: TISAGENLECLEUCEL
     Indication: ACUTE LYMPHOCYTIC LEUKAEMIA
     Dosage: 1 DF, QD (INTO BLOODSTREAM VIA VEIN)
     Route: 042

REACTIONS (4)
  - White blood cell count increased [Unknown]
  - Cytokine release syndrome [Unknown]
  - Blast cell count increased [Unknown]
  - Blood count abnormal [Unknown]
